FAERS Safety Report 5305927-4 (Version None)
Quarter: 2007Q2

REPORT INFORMATION
  Report Type: 
  Country: None (occurrence: None)
  Receive Date: 20070424
  Receipt Date: 20070417
  Transmission Date: 20071010
  Serious: Yes (Life-Threatening, Other)
  Sender: FDA-Public Use
  Company Number: GB-GLAXOSMITHKLINE-B0467573A

PATIENT
  Age: 13 Month
  Sex: Male
  Weight: 10 kg

DRUGS (2)
  1. AMOXICILLIN [Suspect]
     Indication: OTITIS MEDIA
     Dosage: 125MG THREE TIMES PER DAY
     Route: 048
     Dates: start: 20070228, end: 20070305
  2. CALPOL [Concomitant]
     Route: 048

REACTIONS (5)
  - DIARRHOEA [None]
  - NEPHRITIS INTERSTITIAL [None]
  - RASH MACULO-PAPULAR [None]
  - RENAL FAILURE [None]
  - VOMITING [None]
